FAERS Safety Report 20105678 (Version 3)
Quarter: 2022Q1

REPORT INFORMATION
  Report Type: Spontaneous
  Country: JP (occurrence: JP)
  Receive Date: 20211124
  Receipt Date: 20220105
  Transmission Date: 20220423
  Serious: Yes (Hospitalization)
  Sender: FDA-Public Use
  Company Number: JP-NBI-S202100373BIPI

PATIENT
  Age: 7 Decade
  Sex: Male

DRUGS (1)
  1. MICARDIS [Suspect]
     Active Substance: TELMISARTAN
     Indication: Hypertension
     Route: 048

REACTIONS (1)
  - Sprue-like enteropathy [Recovered/Resolved]
